FAERS Safety Report 8620856-6 (Version None)
Quarter: 2012Q3

REPORT INFORMATION
  Report Type: 
  Country: None (occurrence: None)
  Receive Date: 20120824
  Receipt Date: 20120822
  Transmission Date: 20120928
  Serious: Yes (Hospitalization)
  Sender: FDA-Public Use
  Company Number: DE-ROCHE-1106592

PATIENT
  Age: 51 Year
  Sex: Female
  Weight: 93.4 kg

DRUGS (1)
  1. ZELBORAF [Suspect]
     Indication: MALIGNANT MELANOMA
     Dosage: LAST DOSE PRIOR TO SAE:22 AUG 2012
     Route: 048
     Dates: start: 20120308

REACTIONS (1)
  - VISUAL IMPAIRMENT [None]
